FAERS Safety Report 10187278 (Version 1)
Quarter: 2014Q2

REPORT INFORMATION
  Report Type: Spontaneous
  Country: US (occurrence: None)
  Receive Date: 20140520
  Receipt Date: 20140520
  Transmission Date: 20141212
  Serious: Yes (Other)
  Sender: FDA-Public Use
  Company Number: 2014-US-005917

PATIENT
  Age: 32 Year
  Sex: Female

DRUGS (3)
  1. XYREM [Suspect]
     Indication: NARCOLEPSY
     Route: 048
     Dates: start: 201202
  2. XYREM [Suspect]
     Indication: SOMNOLENCE
     Route: 048
     Dates: start: 201202
  3. GABAPENTIN (GABAPENTIN) [Suspect]
     Indication: ARTHRALGIA
     Route: 048
     Dates: start: 20140508

REACTIONS (7)
  - Rheumatoid arthritis [None]
  - Fibromyalgia [None]
  - Arthralgia [None]
  - Fatigue [None]
  - Somnolence [None]
  - Somnolence [None]
  - Hypersomnia [None]
